FAERS Safety Report 6547384-6 (Version None)
Quarter: 2010Q1

REPORT INFORMATION
  Report Type: 
  Country: None (occurrence: None)
  Receive Date: 20100122
  Receipt Date: 20100117
  Transmission Date: 20100710
  Serious: Yes (Other)
  Sender: FDA-Public Use
  Company Number: US-AMGEN-US358876

PATIENT
  Age: 11 Year
  Sex: Female
  Weight: 30.8 kg

DRUGS (8)
  1. ENBREL [Suspect]
     Indication: JUVENILE ARTHRITIS
     Route: 058
     Dates: start: 20070301
  2. METHOTREXATE [Concomitant]
     Route: 048
     Dates: start: 20000801, end: 20020901
  3. METHOTREXATE [Concomitant]
     Dates: start: 20040901
  4. FOLIC ACID [Concomitant]
     Route: 048
  5. NAPROSYN [Concomitant]
     Route: 048
     Dates: start: 20000801, end: 20020901
  6. NAPROSYN [Concomitant]
     Route: 048
     Dates: start: 20040601, end: 20060501
  7. NAPROSYN [Concomitant]
     Route: 048
     Dates: start: 20070101
  8. MULTI-VITAMINS [Concomitant]
     Route: 048

REACTIONS (1)
  - CHILLBLAINS [None]
